FAERS Safety Report 7368032-1 (Version None)
Quarter: 2011Q1

REPORT INFORMATION
  Report Type: 
  Country: None (occurrence: None)
  Receive Date: 20110323
  Receipt Date: 20110311
  Transmission Date: 20110831
  Serious: Yes (Hospitalization, Other)
  Sender: FDA-Public Use
  Company Number: US-BRISTOL-MYERS SQUIBB COMPANY-14393581

PATIENT
  Age: 65 Year
  Sex: Male
  Weight: 64 kg

DRUGS (6)
  1. FOLIC ACID [Concomitant]
     Route: 065
  2. DOCETAXEL [Suspect]
     Indication: NON-SMALL CELL LUNG CANCER METASTATIC
     Dosage: INTERRUPTED ON 02FEB2007 RESUMED ON 09MAR2007
     Route: 042
     Dates: start: 20070112
  3. VITAMIN B-12 [Concomitant]
     Route: 065
  4. ATROVENT [Concomitant]
     Indication: CHRONIC OBSTRUCTIVE PULMONARY DISEASE
     Route: 065
  5. CETUXIMAB [Suspect]
     Indication: NON-SMALL CELL LUNG CANCER METASTATIC
     Dosage: INTERRIPTED ON 16FEB2007 RESUMED ON 09MAR2007
     Route: 042
     Dates: start: 20070112
  6. IBUPROFEN [Concomitant]

REACTIONS (3)
  - DYSPNOEA [None]
  - PULMONARY EMBOLISM [None]
  - HERPES ZOSTER [None]
